FAERS Safety Report 14144973 (Version 2)
Quarter: 2017Q4

REPORT INFORMATION
  Report Type: Report from Study
  Country: IT (occurrence: IT)
  Receive Date: 20171031
  Receipt Date: 20171213
  Transmission Date: 20180321
  Serious: Yes (Death)
  Sender: FDA-Public Use
  Company Number: IT-VIFOR (INTERNATIONAL) INC.-VIT-2017-11887

PATIENT
  Age: 77 Year
  Sex: Male
  Weight: 62.5 kg

DRUGS (5)
  1. COUMADIN [Concomitant]
     Active Substance: WARFARIN SODIUM
     Indication: CHRONIC KIDNEY DISEASE
     Dates: start: 20170201, end: 20171020
  2. LANSOX [Concomitant]
     Active Substance: LANSOPRAZOLE
     Indication: CHRONIC KIDNEY DISEASE
     Dates: start: 20170201, end: 20171021
  3. CALCIPARINA [Concomitant]
     Active Substance: HEPARIN CALCIUM
     Indication: CHRONIC KIDNEY DISEASE
     Dates: start: 20170201, end: 20170410
  4. VELPHORO [Suspect]
     Active Substance: FERRIC OXYHYDROXIDE
     Indication: HYPERPHOSPHATAEMIA
     Route: 048
     Dates: start: 20170801
  5. CALCITRIOL. [Concomitant]
     Active Substance: CALCITRIOL
     Indication: CHRONIC KIDNEY DISEASE
     Dates: start: 20170201, end: 20171021

REACTIONS (1)
  - Urosepsis [Fatal]

NARRATIVE: CASE EVENT DATE: 20171020
